FAERS Safety Report 16623529 (Version 1)
Quarter: 2019Q3

REPORT INFORMATION
  Report Type: Report from Study
  Country: MX (occurrence: MX)
  Receive Date: 20190724
  Receipt Date: 20190724
  Transmission Date: 20191004
  Serious: Yes (Other)
  Sender: FDA-Public Use
  Company Number: MX-ORION CORPORATION ORION PHARMA-ENTC2019-0191

PATIENT
  Sex: Female
  Weight: 67 kg

DRUGS (2)
  1. CO-DIOVAN [Suspect]
     Active Substance: HYDROCHLOROTHIAZIDE\VALSARTAN
     Indication: BLOOD PRESSURE ABNORMAL
     Dosage: HYDROCHLOROTHIAZIDE 25 MG, VALSARTAN 160 MG
     Route: 048
     Dates: start: 198607
  2. STALEVO [Suspect]
     Active Substance: CARBIDOPA\ENTACAPONE\LEVODOPA
     Indication: PARKINSONISM
     Dosage: STRENGTH: LEVODOPA 50, CARBIDOPA 12.5, ENTACAPONE 200 MG
     Route: 048
     Dates: start: 1999

REACTIONS (2)
  - Cataract [Unknown]
  - Visual impairment [Not Recovered/Not Resolved]
